FAERS Safety Report 19076992 (Version 3)
Quarter: 2021Q2

REPORT INFORMATION
  Report Type: Spontaneous
  Country: LB (occurrence: LB)
  Receive Date: 20210331
  Receipt Date: 20210524
  Transmission Date: 20210717
  Serious: Yes (Disabling)
  Sender: FDA-Public Use
  Company Number: NVSC2021LB066778

PATIENT
  Age: 23 Year
  Sex: Male
  Weight: 51 kg

DRUGS (18)
  1. DESFERAL [Suspect]
     Active Substance: DEFEROXAMINE MESYLATE
     Dosage: UNK
     Route: 042
     Dates: start: 20201014, end: 20201126
  2. JADENU [Suspect]
     Active Substance: DEFERASIROX
     Indication: CHELATION THERAPY
     Dosage: UNK
     Route: 065
  3. LUSPATERCEPT. [Concomitant]
     Active Substance: LUSPATERCEPT
     Indication: PRODUCT USED FOR UNKNOWN INDICATION
     Dosage: 1.25 MG/KG
     Route: 058
     Dates: start: 20170502, end: 20170502
  4. LUSPATERCEPT. [Concomitant]
     Active Substance: LUSPATERCEPT
     Dosage: 1.25 MG/KG (FOR 21 DAYS)
     Route: 058
     Dates: start: 20201104, end: 20201104
  5. LUSPATERCEPT. [Concomitant]
     Active Substance: LUSPATERCEPT
     Dosage: UNK
     Route: 058
     Dates: start: 20170707, end: 20170912
  6. LUSPATERCEPT. [Concomitant]
     Active Substance: LUSPATERCEPT
     Dosage: UNK
     Route: 058
     Dates: start: 20180817, end: 20181130
  7. LUSPATERCEPT. [Concomitant]
     Active Substance: LUSPATERCEPT
     Dosage: UNK
     Route: 058
     Dates: start: 20180320, end: 20180725
  8. LUSPATERCEPT. [Concomitant]
     Active Substance: LUSPATERCEPT
     Dosage: UNK
     Route: 058
     Dates: start: 2020, end: 20210303
  9. DESFERAL [Suspect]
     Active Substance: DEFEROXAMINE MESYLATE
     Indication: THALASSAEMIA BETA
     Dosage: 1250 MG, Q3W
     Route: 058
     Dates: start: 20180227, end: 20200420
  10. JADENU [Suspect]
     Active Substance: DEFERASIROX
     Dosage: 720 MG
     Route: 065
     Dates: start: 20201001, end: 20201230
  11. LUSPATERCEPT. [Concomitant]
     Active Substance: LUSPATERCEPT
     Dosage: UNK
     Route: 058
     Dates: start: 20190408, end: 20191129
  12. LUSPATERCEPT. [Concomitant]
     Active Substance: LUSPATERCEPT
     Dosage: 1.25 MG/KG (FOR 21 DAYS)
     Route: 058
     Dates: start: 20200107, end: 20200217
  13. DESFERAL [Suspect]
     Active Substance: DEFEROXAMINE MESYLATE
     Dosage: 1250 MG, Q3W
     Route: 058
     Dates: start: 20200504
  14. LUSPATERCEPT. [Concomitant]
     Active Substance: LUSPATERCEPT
     Dosage: UNK
     Route: 058
     Dates: start: 20170523, end: 20170616
  15. LUSPATERCEPT. [Concomitant]
     Active Substance: LUSPATERCEPT
     Dosage: 1.25 MG/KG (FOR 21 DAYS)
     Route: 058
     Dates: start: 20200310, end: 20200331
  16. LUSPATERCEPT. [Concomitant]
     Active Substance: LUSPATERCEPT
     Dosage: UNK
     Route: 058
     Dates: start: 20171005, end: 20180226
  17. LUSPATERCEPT. [Concomitant]
     Active Substance: LUSPATERCEPT
     Dosage: UNK
     Route: 058
     Dates: start: 20181219, end: 20190318
  18. LUSPATERCEPT. [Concomitant]
     Active Substance: LUSPATERCEPT
     Dosage: UNK
     Route: 058
     Dates: start: 20200107, end: 20200217

REACTIONS (8)
  - Balance disorder [Unknown]
  - Inappropriate schedule of product administration [Unknown]
  - Muscular weakness [Unknown]
  - Fall [Unknown]
  - Gait disturbance [Unknown]
  - Myelopathy [Recovered/Resolved]
  - Musculoskeletal stiffness [Unknown]
  - Product use issue [Unknown]

NARRATIVE: CASE EVENT DATE: 20201014
